FAERS Safety Report 21785827 (Version 1)
Quarter: 2022Q4

REPORT INFORMATION
  Report Type: Report from Study
  Country: US (occurrence: US)
  Receive Date: 20221227
  Receipt Date: 20221227
  Transmission Date: 20230112
  Serious: No
  Sender: FDA-Public Use
  Company Number: US-ABBVIE-4203793

PATIENT
  Sex: Female

DRUGS (1)
  1. SKYRIZI [Suspect]
     Active Substance: RISANKIZUMAB-RZAA
     Indication: Psoriasis
     Dosage: 150 MG SQ PEN ON WEEK 0, THEN WEEK 4, AND EVERY 12 WEEKS THEREAFTER.
     Route: 058

REACTIONS (2)
  - Psoriasis [Unknown]
  - Burning sensation [Unknown]
